FAERS Safety Report 8986984 (Version 2)
Quarter: 2013Q1

REPORT INFORMATION
  Report Type: Spontaneous
  Country: US (occurrence: US)
  Receive Date: 20121226
  Receipt Date: 20130110
  Transmission Date: 20140127
  Serious: Yes (Hospitalization, Other)
  Sender: FDA-Public Use
  Company Number: PHHY2012US118162

PATIENT
  Age: 82 Year
  Sex: Female

DRUGS (5)
  1. BUFFERIN REGULAR STRENGTH [Suspect]
     Indication: PAIN
     Dosage: 2 DF, Q4H
     Route: 048
  2. BUFFERIN REGULAR STRENGTH [Suspect]
     Indication: SLEEP DISORDER
  3. ASPIRIN [Suspect]
  4. AMBIEN [Concomitant]
  5. LUNESTA [Concomitant]

REACTIONS (7)
  - Sciatica [Not Recovered/Not Resolved]
  - Spinal column stenosis [Not Recovered/Not Resolved]
  - Gait disturbance [Recovered/Resolved]
  - Blood pressure increased [Recovered/Resolved]
  - Fall [Recovered/Resolved]
  - Intervertebral disc compression [Not Recovered/Not Resolved]
  - Incorrect drug administration duration [Unknown]
